FAERS Safety Report 4976569-5 (Version None)
Quarter: 2006Q2

REPORT INFORMATION
  Report Type: 
  Country: None (occurrence: None)
  Receive Date: 20060419
  Receipt Date: 20050919
  Transmission Date: 20061013
  Serious: Yes (Other)
  Sender: FDA-Public Use
  Company Number: US-MERCK-0509USA02943

PATIENT
  Age: 60 Year
  Sex: Male
  Weight: 86 kg

DRUGS (11)
  1. VIOXX [Suspect]
     Indication: ARTHRITIS
     Route: 048
     Dates: start: 20000701, end: 20030601
  2. PRED FORTE [Concomitant]
     Route: 065
  3. PERIOGARD [Concomitant]
     Route: 065
     Dates: start: 20010801
  4. TRAVATAN [Concomitant]
     Route: 065
     Dates: start: 20010801
  5. ZITHROMAX [Concomitant]
     Route: 065
     Dates: start: 20010101
  6. AMOXICILLIN [Concomitant]
     Route: 065
     Dates: start: 19980201
  7. ATARAX [Concomitant]
     Route: 065
     Dates: start: 19980401
  8. BIAXIN [Concomitant]
     Route: 065
     Dates: start: 19981101
  9. VIAGRA [Concomitant]
     Route: 065
     Dates: start: 19980401
  10. AVELOX [Concomitant]
     Route: 065
     Dates: start: 20010201
  11. SUDAFED 12 HOUR [Concomitant]
     Route: 065
     Dates: start: 19980201

REACTIONS (23)
  - BACK PAIN [None]
  - BLINDNESS UNILATERAL [None]
  - BRADYCARDIA [None]
  - CATARACT [None]
  - CHEST PAIN [None]
  - CORONARY ARTERY DISEASE [None]
  - COUGH [None]
  - EUSTACHIAN TUBE DYSFUNCTION [None]
  - GLAUCOMA [None]
  - HEADACHE [None]
  - HYPERLIPIDAEMIA [None]
  - HYPERTENSION [None]
  - HYPERTENSIVE HEART DISEASE [None]
  - INFLUENZA LIKE ILLNESS [None]
  - MUSCLE SPASMS [None]
  - OSTEOARTHRITIS [None]
  - PARAESTHESIA [None]
  - RENAL VEIN OCCLUSION [None]
  - SHOULDER PAIN [None]
  - SPONDYLITIS [None]
  - TENDONITIS [None]
  - UPPER RESPIRATORY TRACT INFECTION [None]
  - VASCULAR OCCLUSION [None]
